FAERS Safety Report 22397197 (Version 1)
Quarter: 2023Q2

REPORT INFORMATION
  Report Type: Other
  Country: HR (occurrence: HR)
  Receive Date: 20230602
  Receipt Date: 20230602
  Transmission Date: 20230721
  Serious: Yes (Other)
  Sender: FDA-Public Use
  Company Number: HR-CELLTRION INC.-2023HR011300

PATIENT

DRUGS (1)
  1. INFLIXIMAB [Suspect]
     Active Substance: INFLIXIMAB
     Indication: Inflammatory bowel disease
     Dosage: 500 MILLIGRAM, EVERY 4 WEEKS
     Route: 042
     Dates: start: 20211130, end: 20230302

REACTIONS (2)
  - Colitis ulcerative [Recovering/Resolving]
  - Intentional product use issue [Unknown]

NARRATIVE: CASE EVENT DATE: 20230302
